FAERS Safety Report 4658848-4 (Version None)
Quarter: 2005Q2

REPORT INFORMATION
  Report Type: 
  Country: None (occurrence: None)
  Receive Date: 20050509
  Receipt Date: 20050429
  Transmission Date: 20051028
  Serious: Yes (Hospitalization)
  Sender: FDA-Public Use
  Company Number: 2005069137

PATIENT
  Age: 46 Year
  Sex: Male

DRUGS (5)
  1. LIPITOR [Suspect]
     Indication: ILL-DEFINED DISORDER
     Dosage: 10 MG (10 MG, 1 IN 1 D), ORAL
     Route: 048
     Dates: start: 19980101
  2. CANDESARTAN CILEXETIL (CANDESARTAN CILEXETIL) [Concomitant]
  3. CLOPIDOGREL BISULFATE [Concomitant]
  4. BUMETANIDE [Concomitant]
  5. PROBENECID [Concomitant]

REACTIONS (6)
  - EJACULATION DISORDER [None]
  - ERECTILE DYSFUNCTION [None]
  - EYE PAIN [None]
  - HEADACHE [None]
  - SURGERY [None]
  - VISUAL DISTURBANCE [None]
